FAERS Safety Report 21416493 (Version 1)
Quarter: 2022Q4

REPORT INFORMATION
  Report Type: Spontaneous
  Country: GR (occurrence: GR)
  Receive Date: 20221006
  Receipt Date: 20221006
  Transmission Date: 20230113
  Serious: Yes (Life-Threatening, Hospitalization)
  Sender: FDA-Public Use
  Company Number: GR-PFIZER INC-PV202200069609

PATIENT
  Age: 12 Year
  Sex: Female

DRUGS (2)
  1. HYDROCORTISONE SODIUM SUCCINATE [Suspect]
     Active Substance: HYDROCORTISONE SODIUM SUCCINATE
     Indication: Anaphylactic reaction
     Dosage: 125 MG
     Route: 042
  2. LEVOCETIRIZINE [Suspect]
     Active Substance: LEVOCETIRIZINE
     Indication: Anaphylactic reaction
     Dosage: 10 ML
     Route: 048

REACTIONS (1)
  - Drug ineffective [Unknown]
